FAERS Safety Report 7992601-9 (Version None)
Quarter: 2011Q4

REPORT INFORMATION
  Report Type: 
  Country: None (occurrence: None)
  Receive Date: 20111219
  Receipt Date: 20111213
  Transmission Date: 20120403
  Serious: Yes (Other)
  Sender: FDA-Public Use
  Company Number: US-PFIZER INC-2011269058

PATIENT
  Sex: Male

DRUGS (1)
  1. EFFEXOR [Suspect]
     Dosage: 75MG TABLET (CUT IN HALF, HALF IN THE MORNING, HALF IN THE EVENING)
     Dates: start: 20111024

REACTIONS (14)
  - ATRIAL FIBRILLATION [None]
  - PALPITATIONS [None]
  - INSOMNIA [None]
  - ANXIETY [None]
  - TENSION HEADACHE [None]
  - HYPOAESTHESIA [None]
  - TINNITUS [None]
  - RESTLESSNESS [None]
  - MALAISE [None]
  - MUSCLE TIGHTNESS [None]
  - PARAESTHESIA [None]
  - EMOTIONAL DISORDER [None]
  - HALLUCINATION [None]
  - DRUG INTOLERANCE [None]
